FAERS Safety Report 5450990-3 (Version None)
Quarter: 2007Q3

REPORT INFORMATION
  Report Type: 
  Country: None (occurrence: None)
  Receive Date: 20070911
  Receipt Date: 20070831
  Transmission Date: 20080115
  Serious: Yes (Hospitalization)
  Sender: FDA-Public Use
  Company Number: 2007-163690

PATIENT
  Age: 47 Year
  Sex: Male

DRUGS (10)
  1. ROCURONIUM BROMIDE [Suspect]
     Indication: HERNIA
     Dates: start: 20070530
  2. FENTANYL [Suspect]
     Indication: HERNIA
     Dosage: 100 UG QD
     Dates: start: 20070530
  3. PARECOXIB SODIUM [Suspect]
     Dosage: 40 MG QD
     Dates: start: 20070530
  4. TICARCILLIN/CLAVULANATE POTASSIUM [Suspect]
     Dosage: 3.1 G QD
     Dates: start: 20070530
  5. TRAMADOL HCL [Suspect]
     Dosage: 200 MG QD
     Dates: start: 20070530
  6. MORPHINE [Suspect]
     Dosage: 10 MG QD
     Dates: start: 20070530
  7. PERINDOPRIL ERBUMINE [Concomitant]
  8. INDAPAMIDE [Concomitant]
  9. PANTOPRAZOLE SODIUM [Concomitant]
  10. ORLISTAT [Concomitant]

REACTIONS (3)
  - DYSPHONIA [None]
  - DYSPNOEA [None]
  - LOCAL SWELLING [None]
